FAERS Safety Report 6222979-8 (Version None)
Quarter: 2009Q2

REPORT INFORMATION
  Report Type: 
  Country: None (occurrence: None)
  Receive Date: 20090611
  Receipt Date: 20090603
  Transmission Date: 20091009
  Serious: Yes (Hospitalization)
  Sender: FDA-Public Use
  Company Number: CA-B.I. PHARMACEUTICALS,INC./RIDGEFIELD-2009-CN-00425CN

PATIENT
  Sex: Male

DRUGS (6)
  1. FLOMAX [Suspect]
     Indication: BENIGN PROSTATIC HYPERPLASIA
     Dosage: AT BEDTIME
     Route: 048
  2. ASPIRIN [Concomitant]
     Dates: start: 19950101
  3. CALCIUM [Concomitant]
  4. VITAMIN D [Concomitant]
  5. FOSAMAX [Concomitant]
     Dosage: ONCE A WEEK
  6. LIPITOR [Concomitant]

REACTIONS (2)
  - ARTERIAL OCCLUSIVE DISEASE [None]
  - NOCTURIA [None]
